FAERS Safety Report 12394405 (Version 1)
Quarter: 2016Q2

REPORT INFORMATION
  Report Type: Spontaneous
  Country: US (occurrence: US)
  Receive Date: 20160523
  Receipt Date: 20160523
  Transmission Date: 20160815
  Serious: No
  Sender: FDA-Public Use
  Company Number: US-TARO-2015TAR00535

PATIENT
  Age: 42 Month
  Sex: Male
  Weight: 16.33 kg

DRUGS (3)
  1. CETIRIZINE HCL [Suspect]
     Active Substance: CETIRIZINE HYDROCHLORIDE
     Dosage: 1 TSP, 2X/DAY
     Route: 048
     Dates: start: 201504
  2. CHILDREN^S NOSE DRIP [Concomitant]
  3. CETIRIZINE HCL [Suspect]
     Active Substance: CETIRIZINE HYDROCHLORIDE
     Indication: MULTIPLE ALLERGIES
     Dosage: 0.5 TSP, 2X/DAY
     Route: 048
     Dates: start: 201504, end: 201504

REACTIONS (2)
  - Prescribed overdose [Not Recovered/Not Resolved]
  - Cough [Not Recovered/Not Resolved]

NARRATIVE: CASE EVENT DATE: 201504
